FAERS Safety Report 18834426 (Version 27)
Quarter: 2024Q2

REPORT INFORMATION
  Report Type: Report from Study
  Country: MX (occurrence: MX)
  Receive Date: 20210203
  Receipt Date: 20240625
  Transmission Date: 20240716
  Serious: Yes (Death, Hospitalization, Other)
  Sender: FDA-Public Use
  Company Number: MX-TAKEDA-MX201712103

PATIENT
  Age: 16 Year
  Sex: Male
  Weight: 19 kg

DRUGS (10)
  1. IDURSULFASE [Suspect]
     Active Substance: IDURSULFASE
     Indication: Mucopolysaccharidosis II
     Dosage: 12 MILLIGRAM, 1/WEEK
     Route: 042
     Dates: start: 2012
  2. IDURSULFASE [Suspect]
     Active Substance: IDURSULFASE
     Dosage: 14 MILLIGRAM, 1/WEEK
     Route: 042
     Dates: start: 20140306
  3. IDURSULFASE [Suspect]
     Active Substance: IDURSULFASE
     Dosage: 12 MILLIGRAM, 1/WEEK
     Route: 042
     Dates: start: 20140506
  4. IDURSULFASE [Suspect]
     Active Substance: IDURSULFASE
     Dosage: 14 MILLIGRAM, 1/WEEK
     Route: 042
     Dates: start: 201405, end: 20240618
  5. VALPROATE SODIUM [Concomitant]
     Active Substance: VALPROATE SODIUM
     Dosage: UNK
     Route: 065
  6. LEVETIRACETAM [Concomitant]
     Active Substance: LEVETIRACETAM
     Indication: Seizure
     Dosage: 3 MILLILITER
     Route: 065
  7. VALPROATE MAGNESIUM [Concomitant]
     Active Substance: VALPROATE MAGNESIUM
     Dosage: 2.5 MILLILITER, BID
     Route: 048
  8. KEPPRA [Concomitant]
     Active Substance: LEVETIRACETAM
     Dosage: 7 MILLILITER, BID
     Route: 048
  9. TOPIRAMATE [Concomitant]
     Active Substance: TOPIRAMATE
     Dosage: 50 MILLILITER, BID
     Route: 048
  10. TOPIRAMATE [Concomitant]
     Active Substance: TOPIRAMATE
     Dosage: 150 MILLIGRAM
     Route: 065

REACTIONS (28)
  - Pneumonia [Fatal]
  - Cardio-respiratory arrest [Fatal]
  - Underweight [Unknown]
  - Dehydration [Unknown]
  - Mastication disorder [Unknown]
  - Dysphagia [Unknown]
  - Disease progression [Unknown]
  - Stoma complication [Recovering/Resolving]
  - Diarrhoea [Unknown]
  - COVID-19 [Recovered/Resolved]
  - Stoma site haemorrhage [Recovering/Resolving]
  - Tracheitis [Recovering/Resolving]
  - Culture urine positive [Recovering/Resolving]
  - Vascular access device culture positive [Recovering/Resolving]
  - Haemoglobin decreased [Recovering/Resolving]
  - Stoma site infection [Recovering/Resolving]
  - Seizure [Recovered/Resolved]
  - Pyrexia [Recovering/Resolving]
  - Wound [Unknown]
  - Duodenogastric reflux [Unknown]
  - Dyspnoea [Unknown]
  - Stoma site irritation [Not Recovered/Not Resolved]
  - Stoma site discharge [Not Recovered/Not Resolved]
  - Body temperature increased [Recovering/Resolving]
  - Oxygen saturation decreased [Recovering/Resolving]
  - Product availability issue [Not Recovered/Not Resolved]
  - Product dose omission issue [Not Recovered/Not Resolved]
  - Inappropriate schedule of product administration [Not Recovered/Not Resolved]

NARRATIVE: CASE EVENT DATE: 20210118
